FAERS Safety Report 9398648 (Version 2)
Quarter: 2013Q3

REPORT INFORMATION
  Report Type: Report from Study
  Country: TW (occurrence: TW)
  Receive Date: 20130712
  Receipt Date: 20130806
  Transmission Date: 20140515
  Serious: Yes (Hospitalization)
  Sender: FDA-Public Use
  Company Number: TW-MERCK-1307TWN004433

PATIENT
  Age: 49 Year
  Sex: Male
  Weight: 52 kg

DRUGS (8)
  1. BLINDED BOCEPREVIR [Suspect]
     Indication: CHRONIC HEPATITIS C
     Dosage: UNK
     Route: 048
     Dates: start: 20120420, end: 20130222
  2. BLINDED POST TRIAL THERAPY [Suspect]
     Indication: CHRONIC HEPATITIS C
     Dosage: UNK
     Route: 048
     Dates: start: 20120420, end: 20130222
  3. BLINDED PRE TRIAL THERAPY [Suspect]
     Indication: CHRONIC HEPATITIS C
     Dosage: UNK
     Route: 048
     Dates: start: 20120420, end: 20130222
  4. BLINDED RIBAVIRIN (+) PEGINTERFERON ALFA-2B [Suspect]
     Indication: CHRONIC HEPATITIS C
     Dosage: UNK
     Route: 048
     Dates: start: 20120420, end: 20130222
  5. PEG-INTRON [Suspect]
     Indication: CHRONIC HEPATITIS C
     Dosage: 80 MICROGRAM, QW
     Route: 058
     Dates: start: 20120323, end: 20120818
  6. PEG-INTRON [Suspect]
     Dosage: 56 MICROGRAM, QW
     Route: 058
     Dates: start: 20120817, end: 20130222
  7. RIBAVIRIN [Suspect]
     Indication: CHRONIC HEPATITIS C
     Dosage: 800 MG, QD
     Route: 048
     Dates: start: 20120323, end: 20130222
  8. SILYMARIN [Concomitant]
     Indication: CHRONIC HEPATITIS C
     Dosage: 150 MG, BID
     Route: 048
     Dates: start: 20120402

REACTIONS (1)
  - Cholecystitis acute [Recovered/Resolved]
